FAERS Safety Report 11216260 (Version 1)
Quarter: 2015Q2

REPORT INFORMATION
  Report Type: Spontaneous
  Country: US (occurrence: US)
  Receive Date: 20150624
  Receipt Date: 20150624
  Transmission Date: 20150821
  Serious: Yes (Other)
  Sender: FDA-Public Use
  Company Number: US-ELI_LILLY_AND_COMPANY-US201506006863

PATIENT
  Sex: Female

DRUGS (1)
  1. CYMBALTA [Suspect]
     Active Substance: DULOXETINE HYDROCHLORIDE
     Indication: DEPRESSION
     Dosage: UNK UNK, UNKNOWN
     Route: 065
     Dates: start: 201009, end: 201406

REACTIONS (12)
  - Insomnia [Unknown]
  - Mood swings [Unknown]
  - Drug withdrawal syndrome [Unknown]
  - Dizziness [Unknown]
  - Muscle spasms [Unknown]
  - Headache [Unknown]
  - Seizure [Unknown]
  - Photosensitivity reaction [Unknown]
  - Fatigue [Unknown]
  - Nausea [Unknown]
  - Vomiting [Unknown]
  - Paraesthesia [Unknown]
